FAERS Safety Report 12763417 (Version 7)
Quarter: 2020Q3

REPORT INFORMATION
  Report Type: Report from Study
  Country: CN (occurrence: CN)
  Receive Date: 20160920
  Receipt Date: 20171218
  Transmission Date: 20201105
  Serious: Yes (Hospitalization, Other)
  Sender: FDA-Public Use
  Company Number: CN-JNJFOC-20160915548

PATIENT
  Age: 33 Year
  Sex: Female
  Weight: 79 kg

DRUGS (48)
  1. DOXORUBICIN HYDROCHLORIDE. [Suspect]
     Active Substance: DOXORUBICIN HYDROCHLORIDE
     Indication: NEOPLASM MALIGNANT
     Dosage: DAY 1 OF CYCLE 1
     Route: 042
     Dates: start: 20160909, end: 20160909
  2. METOCLOPRAMIDE. [Concomitant]
     Active Substance: METOCLOPRAMIDE
     Indication: PROPHYLAXIS OF NAUSEA AND VOMITING
     Route: 030
     Dates: start: 20161007, end: 20161009
  3. THYMOPENTIN [Concomitant]
     Active Substance: THYMOPENTIN
     Indication: IMMUNE ENHANCEMENT THERAPY
     Route: 041
     Dates: start: 20160908, end: 20160911
  4. LANSOPRAZOLE. [Concomitant]
     Active Substance: LANSOPRAZOLE
     Indication: GASTROINTESTINAL DISORDER THERAPY
     Route: 041
     Dates: start: 20160908, end: 20160911
  5. LANSOPRAZOLE. [Concomitant]
     Active Substance: LANSOPRAZOLE
     Indication: GASTROINTESTINAL DISORDER THERAPY
     Route: 041
     Dates: start: 20161007, end: 20161008
  6. LANSOPRAZOLE. [Concomitant]
     Active Substance: LANSOPRAZOLE
     Indication: GASTROINTESTINAL DISORDER THERAPY
     Route: 041
     Dates: start: 20161210, end: 20161230
  7. POTASSIUM CHLORIDE. [Concomitant]
     Active Substance: POTASSIUM CHLORIDE
     Indication: MINERAL SUPPLEMENTATION
     Route: 041
     Dates: start: 20160909, end: 20160914
  8. POTASSIUM CHLORIDE. [Concomitant]
     Active Substance: POTASSIUM CHLORIDE
     Indication: MINERAL SUPPLEMENTATION
     Route: 041
     Dates: start: 20161209, end: 20161210
  9. METOCLOPRAMIDE. [Concomitant]
     Active Substance: METOCLOPRAMIDE
     Indication: ANTIEMETIC SUPPORTIVE CARE
     Route: 030
     Dates: start: 20161007, end: 20161009
  10. THYMOPENTIN [Concomitant]
     Active Substance: THYMOPENTIN
     Indication: IMMUNE ENHANCEMENT THERAPY
     Route: 041
     Dates: start: 20161008, end: 20161009
  11. THYMOPENTIN [Concomitant]
     Active Substance: THYMOPENTIN
     Indication: IMMUNE ENHANCEMENT THERAPY
     Route: 041
     Dates: start: 20161210, end: 20161211
  12. LANSOPRAZOLE. [Concomitant]
     Active Substance: LANSOPRAZOLE
     Indication: GASTROINTESTINAL DISORDER THERAPY
     Route: 041
     Dates: start: 20161109, end: 20161109
  13. THYMOPENTIN [Concomitant]
     Active Substance: THYMOPENTIN
     Indication: IMMUNE ENHANCEMENT THERAPY
     Route: 041
     Dates: start: 20160919, end: 20160925
  14. THYMOPENTIN [Concomitant]
     Active Substance: THYMOPENTIN
     Indication: IMMUNE ENHANCEMENT THERAPY
     Route: 041
     Dates: start: 20161111, end: 20161111
  15. LANSOPRAZOLE. [Concomitant]
     Active Substance: LANSOPRAZOLE
     Indication: GASTROINTESTINAL DISORDER THERAPY
     Route: 041
     Dates: start: 20161111, end: 20161111
  16. POTASSIUM CHLORIDE. [Concomitant]
     Active Substance: POTASSIUM CHLORIDE
     Indication: MINERAL SUPPLEMENTATION
     Route: 041
     Dates: start: 20161111, end: 20161111
  17. POTASSIUM CHLORIDE. [Concomitant]
     Active Substance: POTASSIUM CHLORIDE
     Indication: MINERAL SUPPLEMENTATION
     Route: 041
     Dates: start: 20161111, end: 20161113
  18. PYRIDOXINE HYDROCHLORIDE. [Concomitant]
     Active Substance: PYRIDOXINE HYDROCHLORIDE
     Indication: PROPHYLAXIS
     Route: 041
     Dates: start: 20161007, end: 20161009
  19. METOCLOPRAMIDE. [Concomitant]
     Active Substance: METOCLOPRAMIDE
     Indication: PROPHYLAXIS OF NAUSEA AND VOMITING
     Route: 030
     Dates: start: 20160908, end: 20160911
  20. THYMOPENTIN [Concomitant]
     Active Substance: THYMOPENTIN
     Indication: IMMUNE ENHANCEMENT THERAPY
     Route: 041
     Dates: start: 20160911, end: 20160914
  21. THYMOPENTIN [Concomitant]
     Active Substance: THYMOPENTIN
     Indication: IMMUNE ENHANCEMENT THERAPY
     Route: 041
     Dates: start: 20161111, end: 20161112
  22. LANSOPRAZOLE. [Concomitant]
     Active Substance: LANSOPRAZOLE
     Indication: GASTROINTESTINAL DISORDER THERAPY
     Route: 041
     Dates: start: 20160911, end: 20160914
  23. LANSOPRAZOLE. [Concomitant]
     Active Substance: LANSOPRAZOLE
     Indication: GASTROINTESTINAL DISORDER THERAPY
     Route: 041
     Dates: start: 20161112, end: 20161113
  24. PYRIDOXINE HYDROCHLORIDE. [Concomitant]
     Active Substance: PYRIDOXINE HYDROCHLORIDE
     Indication: PROPHYLAXIS
     Route: 041
     Dates: start: 20160913, end: 20160914
  25. POTASSIUM CHLORIDE. [Concomitant]
     Active Substance: POTASSIUM CHLORIDE
     Indication: MINERAL SUPPLEMENTATION
     Route: 041
     Dates: start: 20161110, end: 20161110
  26. PYRIDOXINE HYDROCHLORIDE. [Concomitant]
     Active Substance: PYRIDOXINE HYDROCHLORIDE
     Indication: PROPHYLAXIS
     Route: 041
     Dates: start: 20161111, end: 20161113
  27. PYRIDOXINE HYDROCHLORIDE. [Concomitant]
     Active Substance: PYRIDOXINE HYDROCHLORIDE
     Indication: PROPHYLAXIS
     Route: 048
     Dates: start: 20161114, end: 20161202
  28. METOCLOPRAMIDE. [Concomitant]
     Active Substance: METOCLOPRAMIDE
     Indication: PROPHYLAXIS OF NAUSEA AND VOMITING
     Route: 030
     Dates: start: 20161112, end: 20161113
  29. METOCLOPRAMIDE. [Concomitant]
     Active Substance: METOCLOPRAMIDE
     Indication: ANTIEMETIC SUPPORTIVE CARE
     Route: 030
     Dates: start: 20161112, end: 20161113
  30. LANSOPRAZOLE. [Concomitant]
     Active Substance: LANSOPRAZOLE
     Indication: GASTROINTESTINAL DISORDER THERAPY
     Route: 041
     Dates: start: 20161008, end: 20161009
  31. PYRIDOXINE HYDROCHLORIDE. [Concomitant]
     Active Substance: PYRIDOXINE HYDROCHLORIDE
     Indication: PROPHYLAXIS
     Route: 047
     Dates: start: 20161212, end: 20161230
  32. METOCLOPRAMIDE. [Concomitant]
     Active Substance: METOCLOPRAMIDE
     Indication: ANTIEMETIC SUPPORTIVE CARE
     Route: 030
     Dates: start: 20160908, end: 20160911
  33. METOCLOPRAMIDE. [Concomitant]
     Active Substance: METOCLOPRAMIDE
     Indication: PROPHYLAXIS OF NAUSEA AND VOMITING
     Route: 030
     Dates: start: 20161111, end: 20161112
  34. METOCLOPRAMIDE. [Concomitant]
     Active Substance: METOCLOPRAMIDE
     Indication: PROPHYLAXIS OF NAUSEA AND VOMITING
     Route: 030
     Dates: start: 20161209, end: 20161211
  35. METOCLOPRAMIDE. [Concomitant]
     Active Substance: METOCLOPRAMIDE
     Indication: ANTIEMETIC SUPPORTIVE CARE
     Route: 030
     Dates: start: 20161209, end: 20161211
  36. THYMOPENTIN [Concomitant]
     Active Substance: THYMOPENTIN
     Indication: IMMUNE ENHANCEMENT THERAPY
     Route: 041
     Dates: start: 20161007, end: 20161008
  37. THYMOPENTIN [Concomitant]
     Active Substance: THYMOPENTIN
     Indication: IMMUNE ENHANCEMENT THERAPY
     Route: 041
     Dates: start: 20161104, end: 20161107
  38. THYMOPENTIN [Concomitant]
     Active Substance: THYMOPENTIN
     Indication: IMMUNE ENHANCEMENT THERAPY
     Route: 041
     Dates: start: 20161112, end: 20161113
  39. LANSOPRAZOLE. [Concomitant]
     Active Substance: LANSOPRAZOLE
     Indication: GASTROINTESTINAL DISORDER THERAPY
     Route: 041
     Dates: start: 20161110, end: 20161110
  40. LANSOPRAZOLE. [Concomitant]
     Active Substance: LANSOPRAZOLE
     Indication: GASTROINTESTINAL DISORDER THERAPY
     Route: 041
     Dates: start: 20161111, end: 20161112
  41. POTASSIUM CHLORIDE. [Concomitant]
     Active Substance: POTASSIUM CHLORIDE
     Indication: MINERAL SUPPLEMENTATION
     Route: 041
     Dates: start: 20160923, end: 20160925
  42. POTASSIUM CHLORIDE. [Concomitant]
     Active Substance: POTASSIUM CHLORIDE
     Indication: MINERAL SUPPLEMENTATION
     Route: 041
     Dates: start: 20161007, end: 20161008
  43. PYRIDOXINE HYDROCHLORIDE. [Concomitant]
     Active Substance: PYRIDOXINE HYDROCHLORIDE
     Indication: PROPHYLAXIS
     Route: 041
     Dates: start: 20161209, end: 20161211
  44. DOXORUBICIN HYDROCHLORIDE. [Suspect]
     Active Substance: DOXORUBICIN HYDROCHLORIDE
     Route: 042
  45. METOCLOPRAMIDE. [Concomitant]
     Active Substance: METOCLOPRAMIDE
     Indication: ANTIEMETIC SUPPORTIVE CARE
     Route: 030
     Dates: start: 20161111, end: 20161112
  46. THYMOPENTIN [Concomitant]
     Active Substance: THYMOPENTIN
     Indication: IMMUNE ENHANCEMENT THERAPY
     Route: 041
     Dates: start: 20161209, end: 20161210
  47. LANSOPRAZOLE. [Concomitant]
     Active Substance: LANSOPRAZOLE
     Indication: GASTROINTESTINAL DISORDER THERAPY
     Route: 041
     Dates: start: 20161209, end: 20161211
  48. POTASSIUM CHLORIDE. [Concomitant]
     Active Substance: POTASSIUM CHLORIDE
     Indication: MINERAL SUPPLEMENTATION
     Route: 041
     Dates: start: 20160923, end: 20160925

REACTIONS (1)
  - Ascites [Recovered/Resolved]

NARRATIVE: CASE EVENT DATE: 20160910
